FAERS Safety Report 15396363 (Version 1)
Quarter: 2018Q3

REPORT INFORMATION
  Report Type: Spontaneous
  Country: US (occurrence: US)
  Receive Date: 20180918
  Receipt Date: 20180918
  Transmission Date: 20181010
  Serious: No
  Sender: FDA-Public Use
  Company Number: US-ASTRAZENECA-2018SF07040

PATIENT
  Age: 85 Year
  Sex: Female

DRUGS (1)
  1. NEXIUM [Suspect]
     Active Substance: ESOMEPRAZOLE MAGNESIUM
     Indication: OESOPHAGEAL DISORDER
     Dosage: 40 MG, DAILY AT NIGHT ON AND OFF FOR 20 YEARS
     Route: 048
     Dates: start: 1999

REACTIONS (4)
  - Blood urine present [Not Recovered/Not Resolved]
  - Chills [Recovered/Resolved]
  - Oesophageal achalasia [Recovering/Resolving]
  - Intentional dose omission [Unknown]

NARRATIVE: CASE EVENT DATE: 2017
